FAERS Safety Report 12834257 (Version 1)
Quarter: 2016Q4

REPORT INFORMATION
  Report Type: Spontaneous
  Country: IR (occurrence: IR)
  Receive Date: 20161010
  Receipt Date: 20161010
  Transmission Date: 20170207
  Serious: Yes (Life-Threatening, Disabling, Other)
  Sender: FDA-Public Use
  Company Number: IR-BAUSCH-BL-2016-024824

PATIENT
  Age: 3 Year
  Sex: Male

DRUGS (1)
  1. CLOBETASOL [Suspect]
     Active Substance: CLOBETASOL
     Indication: DERMATITIS DIAPER
     Route: 061

REACTIONS (6)
  - Blindness [Not Recovered/Not Resolved]
  - Cushing^s syndrome [Unknown]
  - Hypertensive encephalopathy [Recovering/Resolving]
  - Renal failure [Recovering/Resolving]
  - Adrenal insufficiency [Unknown]
  - Hypertension [Not Recovered/Not Resolved]
